FAERS Safety Report 7692688-7 (Version None)
Quarter: 2011Q3

REPORT INFORMATION
  Report Type: 
  Country: None (occurrence: None)
  Receive Date: 20110819
  Receipt Date: 20110817
  Transmission Date: 20111222
  Serious: No
  Sender: FDA-Public Use
  Company Number: US-PFIZER INC-2011189933

PATIENT
  Sex: Female
  Weight: 7.71 kg

DRUGS (1)
  1. PEDIATRIC ADVIL [Suspect]
     Indication: PYREXIA
     Dosage: UNK
     Dates: start: 20110816

REACTIONS (2)
  - MYDRIASIS [None]
  - VOMITING [None]
